FAERS Safety Report 8434833-1 (Version None)
Quarter: 2012Q2

REPORT INFORMATION
  Report Type: 
  Country: None (occurrence: None)
  Receive Date: 20120608
  Receipt Date: 20120524
  Transmission Date: 20120825
  Serious: Yes (Hospitalization)
  Sender: FDA-Public Use
  Company Number: 2012SGN00234

PATIENT
  Age: 28 Year
  Sex: Female

DRUGS (6)
  1. BRENTUXIMAB VEDOTIN (BRENTUXIMAB VEDOTIN) INJECTION [Suspect]
     Indication: HODGKIN'S DISEASE
     Dosage: UNK
     Dates: start: 20120228, end: 20120511
  2. ETOPOSIDE [Concomitant]
  3. CARBOPLATIN [Concomitant]
  4. ALBUTEROL SULFATE AUTOHALER [Concomitant]
  5. IFOSFAMIDE [Concomitant]
  6. NEUPOGEN [Concomitant]

REACTIONS (8)
  - THERAPEUTIC RESPONSE DECREASED [None]
  - CHILLS [None]
  - ASTHMA [None]
  - ANXIETY [None]
  - FEBRILE NEUTROPENIA [None]
  - CONDITION AGGRAVATED [None]
  - BONE PAIN [None]
  - DYSPNOEA [None]
